FAERS Safety Report 4354857-3 (Version None)
Quarter: 2004Q2

REPORT INFORMATION
  Report Type: 
  Country: None (occurrence: None)
  Receive Date: 20040507
  Receipt Date: 20040123
  Transmission Date: 20050107
  Serious: Yes (Other)
  Sender: FDA-Public Use
  Company Number: DE-GLAXOSMITHKLINE-D0042973A

PATIENT
  Age: 30 Year
  Sex: Female

DRUGS (2)
  1. LAMICTAL [Suspect]
     Dosage: 150MG TWICE PER DAY
     Dates: start: 20010101
  2. ERGENYL CHRONO [Concomitant]
     Route: 065

REACTIONS (1)
  - ADENOMA BENIGN [None]
